FAERS Safety Report 19277181 (Version 1)
Quarter: 2021Q2

REPORT INFORMATION
  Report Type: Other
  Country: US (occurrence: US)
  Receive Date: 20210520
  Receipt Date: 20210520
  Transmission Date: 20210717
  Serious: Yes (Hospitalization)
  Sender: FDA-Public Use
  Company Number: US-ROCHE-2740945

PATIENT
  Age: 70 Year
  Sex: Female

DRUGS (1)
  1. ESBRIET [Suspect]
     Active Substance: PIRFENIDONE
     Indication: IDIOPATHIC PULMONARY FIBROSIS
     Dosage: 3 TABS BY MOUTH 3 TIMES/DAY WITH MEALS, ONGOING: YES
     Route: 048

REACTIONS (2)
  - Cerebrovascular accident [Unknown]
  - Eye disorder [Unknown]

NARRATIVE: CASE EVENT DATE: 202012
